FAERS Safety Report 12461820 (Version 1)
Quarter: 2016Q2

REPORT INFORMATION
  Report Type: Spontaneous
  Country: US (occurrence: US)
  Receive Date: 20160613
  Receipt Date: 20160613
  Transmission Date: 20160815
  Serious: Yes (Other)
  Sender: FDA-Public Use
  Company Number: US-BAYER-2016-114475

PATIENT
  Age: 75 Year
  Sex: Female
  Weight: 111.11 kg

DRUGS (2)
  1. AFRIN ORIGINAL [Suspect]
     Active Substance: OXYMETAZOLINE HYDROCHLORIDE
     Indication: NASAL CONGESTION
     Dosage: 1 DF, QID
     Route: 045
  2. IRON [Concomitant]
     Active Substance: IRON

REACTIONS (2)
  - Product use issue [None]
  - Drug dependence [None]
